FAERS Safety Report 5792377-X (Version None)
Quarter: 2008Q2

REPORT INFORMATION
  Report Type: 
  Country: None (occurrence: None)
  Receive Date: 20080623
  Receipt Date: 20080611
  Transmission Date: 20081010
  Serious: Yes (Hospitalization)
  Sender: FDA-Public Use
  Company Number: GXKR2008IN05477

PATIENT
  Age: 21 Year
  Sex: Male

DRUGS (8)
  1. DOXYCYCLINE [Suspect]
     Indication: PLASMODIUM FALCIPARUM INFECTION
     Dosage: 100 MG, BID, ORAL
     Route: 048
  2. QUININE (NGX) (QUININE) UNKNOWN [Suspect]
     Indication: PLASMODIUM FALCIPARUM INFECTION
     Dosage: , INTRAVENOUS
     Route: 042
  3. GABAPENTIN [Suspect]
     Indication: SUBDURAL HAEMATOMA
     Dosage: 300 MG, BID,; 300 MG, TID,
  4. ARTESUNATE [Suspect]
     Indication: PLASMODIUM FALCIPARUM INFECTION
     Dosage: 140 MG, TWICE ON ADMISSION, INTRAVENOUS; 180 MG, INTRAVENOUS
     Route: 042
  5. CEFEPIME [Suspect]
     Indication: BACTERIAL SEPSIS
     Dosage: 1 MG, BID, INTRAVENOUS
     Route: 042
  6. ANALGESICS (NO INGREDIENTS/SUBSTANCES) [Suspect]
  7. IMIPENEM (IMIPENEM) [Suspect]
     Indication: PANCREATITIS
  8. CLOBAZAM (CLOBAZAM) [Suspect]
     Indication: SUBDURAL HAEMATOMA
     Dosage: 10 MG, QD

REACTIONS (3)
  - DRUG INEFFECTIVE [None]
  - INCORRECT DOSE ADMINISTERED [None]
  - PYREXIA [None]
